FAERS Safety Report 12556442 (Version 1)
Quarter: 2016Q3

REPORT INFORMATION
  Report Type: Spontaneous
  Country: DK (occurrence: DK)
  Receive Date: 20160714
  Receipt Date: 20160714
  Transmission Date: 20161109
  Serious: Yes (Death, Other)
  Sender: FDA-Public Use
  Company Number: DK-CIPLA LTD.-2012DK00489

PATIENT

DRUGS (12)
  1. LEUKOVORIN [Suspect]
     Active Substance: LEUCOVORIN SODIUM
     Indication: GASTROOESOPHAGEAL CANCER
     Dosage: UNK
     Route: 065
  2. EPIRUBICIN [Suspect]
     Active Substance: EPIRUBICIN
     Indication: GASTROOESOPHAGEAL CANCER
     Dosage: UNK
     Route: 065
  3. CARBOPLATIN. [Suspect]
     Active Substance: CARBOPLATIN
     Indication: GASTROOESOPHAGEAL CANCER
     Dosage: UNK
     Route: 065
  4. CLEMESTINE [Concomitant]
     Dosage: 2 MG, UNK
     Route: 042
  5. OXALIPLATIN. [Suspect]
     Active Substance: OXALIPLATIN
     Indication: GASTROOESOPHAGEAL CANCER
     Dosage: UNK
     Route: 065
  6. FLUOROURACIL. [Suspect]
     Active Substance: FLUOROURACIL
     Indication: GASTROOESOPHAGEAL CANCER
     Dosage: UNK
     Route: 065
  7. PREDINISOLONE [Concomitant]
     Indication: ANTIEMETIC SUPPORTIVE CARE
     Dosage: 100 MG, UNK
     Route: 048
  8. IRINOTECAN [Suspect]
     Active Substance: IRINOTECAN
     Indication: GASTROOESOPHAGEAL CANCER
     Dosage: 180 MG/M2, ON DAY 1 EVERY SECOND WEEK.
     Route: 042
  9. CAPECITABINE. [Suspect]
     Active Substance: CAPECITABINE
     Indication: GASTROOESOPHAGEAL CANCER
     Dosage: UNK
     Route: 065
  10. CETUXIMAB [Suspect]
     Active Substance: CETUXIMAB
     Indication: GASTROOESOPHAGEAL CANCER
     Dosage: 500 MG/M2, ON DAY 1 EVERY SECOND WEEK.
  11. DOCETAXEL. [Suspect]
     Active Substance: DOCETAXEL
     Indication: GASTROOESOPHAGEAL CANCER
     Dosage: UNK
     Route: 065
  12. ONDANSETRON [Concomitant]
     Active Substance: ONDANSETRON
     Indication: ANTIEMETIC SUPPORTIVE CARE
     Dosage: 8 MG, BID
     Route: 048

REACTIONS (3)
  - Treatment failure [Unknown]
  - Death [Fatal]
  - Disease progression [Unknown]
